FAERS Safety Report 16584917 (Version 1)
Quarter: 2019Q3

REPORT INFORMATION
  Report Type: Spontaneous
  Country: US (occurrence: US)
  Receive Date: 20190716
  Receipt Date: 20190716
  Transmission Date: 20191004
  Serious: Yes (Disabling)
  Sender: FDA-Public Use
  Company Number: None

PATIENT
  Age: 54 Year
  Sex: Female
  Weight: 52.2 kg

DRUGS (1)
  1. OMNISCAN [Suspect]
     Active Substance: GADODIAMIDE
     Indication: NUCLEAR MAGNETIC RESONANCE IMAGING
     Route: 042
     Dates: start: 20141229, end: 20160727

REACTIONS (44)
  - Tinnitus [None]
  - Endodontic procedure [None]
  - Ligament disorder [None]
  - Fibromyalgia [None]
  - Back pain [None]
  - Menopause [None]
  - Menorrhagia [None]
  - Osteopenia [None]
  - Skin lesion [None]
  - Mastectomy [None]
  - Pain in jaw [None]
  - Neck pain [None]
  - Pain of skin [None]
  - Gingival pain [None]
  - Pain in extremity [None]
  - Migraine [None]
  - Psoriatic arthropathy [None]
  - Gadolinium deposition disease [None]
  - Abdominal discomfort [None]
  - Headache [None]
  - Bone lesion [None]
  - Skin burning sensation [None]
  - Muscle twitching [None]
  - Glossodynia [None]
  - Fatigue [None]
  - Rash [None]
  - Gastrointestinal disorder [None]
  - Arthralgia [None]
  - Tooth extraction [None]
  - Coccydynia [None]
  - Feeling abnormal [None]
  - Tendon pain [None]
  - Dysmenorrhoea [None]
  - Intestinal resection [None]
  - Ileostomy [None]
  - Stoma site inflammation [None]
  - Pain [None]
  - Insomnia [None]
  - Connective tissue disorder [None]
  - Inflammation [None]
  - Paronychia [None]
  - Formication [None]
  - Myalgia [None]
  - Musculoskeletal stiffness [None]

NARRATIVE: CASE EVENT DATE: 20160121
